FAERS Safety Report 11628072 (Version 3)
Quarter: 2017Q4

REPORT INFORMATION
  Report Type: Spontaneous
  Country: US (occurrence: US)
  Receive Date: 20151014
  Receipt Date: 20171030
  Transmission Date: 20180320
  Serious: Yes (Disabling, Other)
  Sender: FDA-Public Use
  Company Number: US-WEST-WARD PHARMACEUTICALS CORP.-US-H14001-15-01779

PATIENT
  Age: 75 Year
  Sex: Male

DRUGS (1)
  1. INFUMORPH [Suspect]
     Active Substance: MORPHINE SULFATE
     Indication: PAIN
     Route: 037

REACTIONS (11)
  - Weight decreased [Unknown]
  - Nausea [Unknown]
  - Walking aid user [Unknown]
  - Confusional state [Unknown]
  - Joint swelling [Unknown]
  - Somnolence [Unknown]
  - Dry mouth [Unknown]
  - Dizziness [Unknown]
  - Dyspnoea [Unknown]
  - Ageusia [Unknown]
  - Muscular weakness [Unknown]

NARRATIVE: CASE EVENT DATE: 20150701
